FAERS Safety Report 9768337 (Version 2)
Quarter: 2014Q4

REPORT INFORMATION
  Report Type: Spontaneous
  Country: GB (occurrence: GB)
  Receive Date: 20131217
  Receipt Date: 20141006
  Transmission Date: 20150529
  Serious: Yes (Death)
  Sender: FDA-Public Use
  Company Number: GB-WATSON-2013-23006

PATIENT
  Age: 86 Year
  Sex: Female
  Weight: 70 kg

DRUGS (11)
  1. BRINZOLAMIDE [Concomitant]
     Active Substance: BRINZOLAMIDE
     Indication: SEPSIS
     Dosage: 1 GTT DROP(S), DAILY
     Route: 061
  2. TAZOCIN [Suspect]
     Active Substance: PIPERACILLIN SODIUM\TAZOBACTAM SODIUM
     Indication: LIVER ABSCESS
  3. LATANOPROST. [Concomitant]
     Active Substance: LATANOPROST
     Indication: SEPSIS
     Dosage: 1 GTT DROP(S), DAILY
     Route: 061
     Dates: start: 20131018, end: 20131025
  4. TAZOBACTAM [Suspect]
     Active Substance: TAZOBACTAM
     Indication: LIVER ABSCESS
  5. TAZOCIN [Suspect]
     Active Substance: PIPERACILLIN SODIUM\TAZOBACTAM SODIUM
     Indication: SEPSIS
     Dosage: 4.5 G, UNKNOWN
     Route: 042
     Dates: start: 20131018, end: 20131025
  6. TAZOBACTAM [Suspect]
     Active Substance: TAZOBACTAM
     Indication: SEPSIS
     Dosage: 4.5 G, UNKNOWN
     Route: 042
     Dates: start: 20131018, end: 20131025
  7. MAGNESIUM GLYCEROPHOSPHATE [Concomitant]
     Active Substance: MAGNESIUM GLYCEROPHOSPHATE
     Indication: SEPSIS
     Dosage: 4 MMOL, UNKNOWN
     Route: 048
     Dates: start: 20131018, end: 20131025
  8. MAGNESIUM GLYCEROPHOSPHATE [Concomitant]
     Active Substance: MAGNESIUM GLYCEROPHOSPHATE
     Indication: BLOOD MAGNESIUM DECREASED
  9. BRINZOLAMIDE [Concomitant]
     Active Substance: BRINZOLAMIDE
     Indication: GLAUCOMA
  10. METRONIDAZOLE BAXTER [Suspect]
     Active Substance: METRONIDAZOLE
     Indication: LIVER ABSCESS
     Dosage: 500 MG, DAILY
     Route: 042
     Dates: start: 20131025, end: 20131025
  11. LATANOPROST. [Concomitant]
     Active Substance: LATANOPROST
     Indication: GLAUCOMA

REACTIONS (2)
  - Anaphylactic reaction [Fatal]
  - Drug administration error [Unknown]

NARRATIVE: CASE EVENT DATE: 20131025
